FAERS Safety Report 8972904 (Version 1)
Quarter: 2012Q4

REPORT INFORMATION
  Report Type: 
  Country: US (occurrence: US)
  Receive Date: 20121218
  Receipt Date: 20121218
  Transmission Date: 20130627
  Serious: No
  Sender: FDA-Public Use
  Company Number: US-BRISTOL-MYERS SQUIBB COMPANY-16954919

PATIENT
  Sex: Male
  Weight: 113.38 kg

DRUGS (1)
  1. ABILIFY [Suspect]
     Dosage: Dose increased to 5 mg and then decreased to 2 mg

REACTIONS (1)
  - Tardive dyskinesia [Recovered/Resolved]
